FAERS Safety Report 20836760 (Version 1)
Quarter: 2022Q2

REPORT INFORMATION
  Report Type: Spontaneous
  Country: AR (occurrence: AR)
  Receive Date: 20220517
  Receipt Date: 20220517
  Transmission Date: 20220720
  Serious: Yes (Other)
  Sender: FDA-Public Use
  Company Number: AR-SUN PHARMACEUTICAL INDUSTRIES LTD-2022R1-336393

PATIENT
  Age: 47 Year
  Sex: Female

DRUGS (1)
  1. GEMCITABINE [Suspect]
     Active Substance: GEMCITABINE
     Indication: Endometrial cancer stage IV
     Dosage: 1000 MILLIGRAM/SQ. METER, 2 CYCLES
     Route: 065

REACTIONS (4)
  - Retinopathy [Unknown]
  - Retinal detachment [Recovered/Resolved]
  - Elschnig^s bodies [Unknown]
  - Thrombocytopenia [Unknown]
